FAERS Safety Report 9432746 (Version 1)
Quarter: 2013Q3

REPORT INFORMATION
  Report Type: Spontaneous
  Country: US (occurrence: US)
  Receive Date: 20130729
  Receipt Date: 20130729
  Transmission Date: 20140515
  Serious: Yes (Other)
  Sender: FDA-Public Use
  Company Number: 2013P1012921

PATIENT
  Sex: Female

DRUGS (2)
  1. PREDNISONE [Suspect]
     Indication: EOSINOPHILIA
     Route: 048
  2. PREDNISONE [Suspect]
     Indication: GRANULOMATOSIS WITH POLYANGIITIS
     Route: 048

REACTIONS (6)
  - Osteoporosis [None]
  - Diabetes mellitus [None]
  - Myopathy [None]
  - Cerebral infarction [None]
  - Spinal fracture [None]
  - Mucocutaneous candidiasis [None]
